FAERS Safety Report 9005932 (Version 1)
Quarter: 2013Q1

REPORT INFORMATION
  Report Type: Spontaneous
  Country: US (occurrence: US)
  Receive Date: 20130109
  Receipt Date: 20130109
  Transmission Date: 20140127
  Serious: Yes (Hospitalization, Other)
  Sender: FDA-Public Use
  Company Number: US-MERCK-1301USA001613

PATIENT
  Age: 44 Year
  Sex: Male

DRUGS (7)
  1. MONTELUKAST SODIUM [Suspect]
     Indication: EPILEPSY
     Route: 048
  2. CARBAMAZEPINE [Suspect]
     Indication: RHINITIS
     Route: 048
  3. CLOBAZAM [Suspect]
     Indication: ASTHMA
     Route: 048
  4. CLARINEX [Suspect]
     Indication: PRODUCT USED FOR UNKNOWN INDICATION
     Route: 048
  5. CANDESARTAN CILEXETIL [Suspect]
     Indication: HYPERTENSION
     Route: 048
  6. DEPAKENE [Suspect]
     Route: 048
  7. ACETAMINOPHEN (+) CODEINE PHOSPHATE [Concomitant]
     Indication: ASTHMA
     Route: 048

REACTIONS (11)
  - Vomiting [Unknown]
  - Vertigo [Unknown]
  - Rhinitis [Unknown]
  - Photophobia [Unknown]
  - Hypothermia [Unknown]
  - Hypertension [Unknown]
  - Headache [Unknown]
  - Gamma-glutamyltransferase increased [Unknown]
  - Cholinergic syndrome [Unknown]
  - Asthma [Unknown]
  - Alanine aminotransferase increased [Unknown]
